FAERS Safety Report 5431568-4 (Version None)
Quarter: 2007Q3

REPORT INFORMATION
  Report Type: 
  Country: None (occurrence: None)
  Receive Date: 20070830
  Receipt Date: 20070820
  Transmission Date: 20080115
  Serious: Yes (Hospitalization)
  Sender: FDA-Public Use
  Company Number: JP-JNJFOC-20070701492

PATIENT
  Sex: Male
  Weight: 52 kg

DRUGS (1)
  1. ITRIZOLE [Suspect]
     Indication: FUNGAL INFECTION
     Route: 048

REACTIONS (2)
  - HYPERTHERMIA [None]
  - RASH GENERALISED [None]
